FAERS Safety Report 15060476 (Version 1)
Quarter: 2018Q2

REPORT INFORMATION
  Report Type: Spontaneous
  Country: GB (occurrence: GB)
  Receive Date: 20180625
  Receipt Date: 20180625
  Transmission Date: 20180711
  Serious: Yes (Death, Hospitalization, Other)
  Sender: FDA-Public Use
  Company Number: PHBS2006GB02869

PATIENT
  Age: 46 Year
  Sex: Female

DRUGS (1)
  1. GLEEVEC [Suspect]
     Active Substance: IMATINIB MESYLATE
     Indication: CHRONIC MYELOID LEUKAEMIA
     Dosage: 400 MG, QD
     Route: 065

REACTIONS (25)
  - Aspartate aminotransferase increased [Fatal]
  - Haemoglobin decreased [Unknown]
  - Hepatic encephalopathy [Fatal]
  - Sepsis [Fatal]
  - Death [Fatal]
  - Gamma-glutamyltransferase increased [Fatal]
  - Ammonia increased [Fatal]
  - Blood creatinine increased [Unknown]
  - Cytopenia [Unknown]
  - Intracranial pressure increased [Fatal]
  - Activated partial thromboplastin time prolonged [Fatal]
  - Blood bilirubin increased [Fatal]
  - International normalised ratio increased [Fatal]
  - Blood urea increased [Unknown]
  - White blood cell count increased [Unknown]
  - Hepatic necrosis [Fatal]
  - Jaundice [Fatal]
  - Vomiting [Fatal]
  - Blood fibrinogen decreased [Fatal]
  - Nausea [Fatal]
  - Fibrin D dimer increased [Fatal]
  - Acute hepatic failure [Fatal]
  - Renal impairment [Unknown]
  - Blood sodium decreased [Unknown]
  - Platelet count decreased [Unknown]
